FAERS Safety Report 23815491 (Version 1)
Quarter: 2024Q2

REPORT INFORMATION
  Report Type: Spontaneous
  Country: US (occurrence: None)
  Receive Date: 20240502
  Receipt Date: 20240502
  Transmission Date: 20240716
  Serious: No
  Sender: FDA-Public Use
  Company Number: None

PATIENT
  Age: 50 Year
  Sex: Female
  Weight: 97.2 kg

DRUGS (1)
  1. FARXIGA [Suspect]
     Active Substance: DAPAGLIFLOZIN PROPANEDIOL
     Indication: Type 2 diabetes mellitus
     Dosage: DAILY ORAL?
     Route: 048
     Dates: start: 20210330, end: 20220901

REACTIONS (3)
  - Cystitis haemorrhagic [None]
  - Urinary tract infection [None]
  - Dysuria [None]

NARRATIVE: CASE EVENT DATE: 20220901
